FAERS Safety Report 4530278-5 (Version None)
Quarter: 2004Q4

REPORT INFORMATION
  Report Type: 
  Country: None (occurrence: None)
  Receive Date: 20041216
  Receipt Date: 20041216
  Transmission Date: 20050328
  Serious: Yes (Death)
  Sender: FDA-Public Use
  Company Number: None

PATIENT
  Age: 16 Year
  Sex: Female
  Weight: 68.0396 kg

DRUGS (3)
  1. WELLBUTRIN SR [Suspect]
     Indication: ANGER
     Dosage: 150MG   2X DAILY   ORAL
     Route: 048
     Dates: start: 20020429, end: 20040308
  2. WELLBUTRIN SR [Suspect]
     Indication: DEPRESSION
     Dosage: 150MG   2X DAILY   ORAL
     Route: 048
     Dates: start: 20020429, end: 20040308
  3. WELLBUTRIN SR [Suspect]
     Indication: STRESS SYMPTOMS
     Dosage: 150MG   2X DAILY   ORAL
     Route: 048
     Dates: start: 20020429, end: 20040308

REACTIONS (2)
  - COMPLETED SUICIDE [None]
  - DRUG WITHDRAWAL SYNDROME [None]
